FAERS Safety Report 7018882-6 (Version None)
Quarter: 2010Q3

REPORT INFORMATION
  Report Type: 
  Country: None (occurrence: None)
  Receive Date: 20100928
  Receipt Date: 20100921
  Transmission Date: 20110219
  Serious: Yes (Other)
  Sender: FDA-Public Use
  Company Number: US-PFIZER INC-2010120582

PATIENT
  Sex: Female
  Weight: 68 kg

DRUGS (4)
  1. CHANTIX [Suspect]
     Indication: SMOKING CESSATION THERAPY
     Dosage: 0.5 MG, UNK
     Route: 048
     Dates: start: 20100913
  2. NABUMETONE [Concomitant]
     Indication: ARTHRITIS
     Dosage: 75 MG, UNK
  3. TRAVATAN [Concomitant]
     Indication: GLAUCOMA
     Dosage: 0.004 %, UNK
  4. OLOPATADINE [Concomitant]
     Indication: GLAUCOMA
     Dosage: 0.2 %, UNK

REACTIONS (5)
  - AGITATION [None]
  - ANXIETY [None]
  - DEPRESSION [None]
  - HOSTILITY [None]
  - WEIGHT DECREASED [None]
